FAERS Safety Report 8805957 (Version 1)
Quarter: 2012Q4

REPORT INFORMATION
  Report Type: Spontaneous
  Country: GB (occurrence: None)
  Receive Date: 20120918
  Receipt Date: 20120918
  Transmission Date: 20130627
  Serious: Yes (Life-Threatening, Hospitalization)
  Sender: FDA-Public Use
  Company Number: FK201202599

PATIENT
  Age: 59 Year

DRUGS (2)
  1. PROPOFOL [Suspect]
     Indication: GENERAL ANAESTHESIA
     Dosage: (NOT OTHERWISE SPECIFIED)
     Route: 042
     Dates: start: 20120704, end: 20120704
  2. ESMERON [Suspect]
     Indication: GENERAL ANAESTHESIA
     Dates: start: 20120704, end: 20120704

REACTIONS (4)
  - Anaphylactic shock [None]
  - Bronchospasm [None]
  - Hypoxia [None]
  - Blood pressure immeasurable [None]
